FAERS Safety Report 8283674-7 (Version None)
Quarter: 2012Q2

REPORT INFORMATION
  Report Type: 
  Country: None (occurrence: None)
  Receive Date: 20120413
  Receipt Date: 20120402
  Transmission Date: 20120825
  Serious: Yes (Hospitalization)
  Sender: FDA-Public Use
  Company Number: FR-B.I. PHARMACEUTICALS,INC./RIDGEFIELD-2012-EU-01317IS

PATIENT
  Sex: Male

DRUGS (13)
  1. IPRATROPIUM BROMIDE [Suspect]
     Route: 055
     Dates: start: 20120120
  2. FLUCONAZOLE [Suspect]
     Dosage: 100 MG
     Route: 048
     Dates: start: 20120119
  3. VENTOLIN [Suspect]
     Dosage: 4 G
     Route: 055
     Dates: start: 20120120
  4. MORPHINE SULFATE [Suspect]
     Dosage: 60 MG
     Route: 048
     Dates: start: 20120119
  5. POTASSIUM CHLORIDE [Suspect]
     Dosage: 1800 MG
     Route: 048
     Dates: start: 20120124
  6. CORDARONE [Suspect]
     Dosage: 1000 MG
     Route: 048
     Dates: start: 20120201, end: 20120215
  7. PREDNISOLONE [Suspect]
     Dosage: 40 MG
     Route: 048
     Dates: start: 20120124
  8. POLYETHYLENE GLYCOL [Suspect]
     Dosage: 2 ANZ
     Route: 048
     Dates: start: 20120119
  9. PANTOPRAZOLE SODIUM [Suspect]
     Dosage: 20 MG
     Route: 048
     Dates: start: 20120124
  10. MOXIFLOXACIN HCL [Suspect]
     Dosage: 400 MG
     Route: 048
     Dates: start: 20120125, end: 20120205
  11. FUROSEMIDE [Suspect]
     Dosage: 60 MG
     Route: 042
     Dates: start: 20120117, end: 20120218
  12. LOVENOX [Suspect]
     Dosage: 4000 U
     Route: 058
     Dates: start: 20120123, end: 20120215
  13. ACETAMINOPHEN [Suspect]
     Dosage: 4 G
     Route: 048
     Dates: start: 20120116

REACTIONS (1)
  - THROMBOCYTOPENIA [None]
